FAERS Safety Report 6989551-3 (Version None)
Quarter: 2010Q3

REPORT INFORMATION
  Report Type: 
  Country: None (occurrence: None)
  Receive Date: 20100916
  Receipt Date: 20100107
  Transmission Date: 20110219
  Serious: Yes (Other)
  Sender: FDA-Public Use
  Company Number: SZ-PFIZER INC-2009301708

PATIENT
  Age: 27 Year
  Sex: Female

DRUGS (4)
  1. LYRICA [Suspect]
     Indication: NERVE INJURY
     Dosage: 75 MG, 2X/DAY
     Route: 048
     Dates: start: 20091120
  2. FLUOXETINE [Concomitant]
     Dosage: 20 MG, 1X/DAY
     Route: 048
  3. DOXYFENE [Concomitant]
     Indication: PAIN
     Dosage: 2 TO 3 TABLETS DAILY
     Route: 048
  4. STOPAYNE CAPSULES [Concomitant]
     Indication: PAIN
     Route: 048

REACTIONS (6)
  - AMNESIA [None]
  - ANGIOEDEMA [None]
  - CONFUSIONAL STATE [None]
  - INSOMNIA [None]
  - NAUSEA [None]
  - WITHDRAWAL SYNDROME [None]
